FAERS Safety Report 7507683-8 (Version None)
Quarter: 2011Q2

REPORT INFORMATION
  Report Type: 
  Country: None (occurrence: None)
  Receive Date: 20110527
  Receipt Date: 20110518
  Transmission Date: 20111010
  Serious: Yes (Hospitalization)
  Sender: FDA-Public Use
  Company Number: US-BIOGENIDEC-2011BI012950

PATIENT
  Age: 65 Year
  Sex: Female

DRUGS (2)
  1. AVONEX [Suspect]
     Indication: MULTIPLE SCLEROSIS
     Route: 030
     Dates: start: 20060209
  2. AMPYRA [Concomitant]
     Dates: start: 20110101, end: 20110101

REACTIONS (6)
  - TYPE 2 DIABETES MELLITUS [None]
  - DYSPHAGIA [None]
  - BREAST CANCER [None]
  - OSTEOARTHRITIS [None]
  - BREAST CYST [None]
  - FIBROMYALGIA [None]
